FAERS Safety Report 20474059 (Version 2)
Quarter: 2022Q1

REPORT INFORMATION
  Report Type: Spontaneous
  Country: US (occurrence: None)
  Receive Date: 20220215
  Receipt Date: 20220307
  Transmission Date: 20220424
  Serious: Yes (Death)
  Sender: FDA-Public Use
  Company Number: US-Unichem Pharmaceuticals (USA) Inc-UCM202202-000106

PATIENT
  Age: 73 Year
  Sex: Female

DRUGS (1)
  1. AMLODIPINE [Suspect]
     Active Substance: AMLODIPINE BESYLATE
     Indication: Intentional overdose
     Dosage: INTENTIONAL OVERDOSE WITH 40 TABLETS OF 10 MG AMLODIPINE

REACTIONS (7)
  - Multiple organ dysfunction syndrome [Fatal]
  - Mental disorder [Fatal]
  - Agitation [Fatal]
  - Vasoplegia syndrome [Fatal]
  - Hypotension [Fatal]
  - Bradycardia [Fatal]
  - Intentional overdose [Fatal]
